FAERS Safety Report 14243339 (Version 1)
Quarter: 2017Q4

REPORT INFORMATION
  Report Type: Spontaneous
  Country: US (occurrence: US)
  Receive Date: 20171201
  Receipt Date: 20171201
  Transmission Date: 20180321
  Serious: Yes (Other)
  Sender: FDA-Public Use
  Company Number: US-STANDARD HOMEOPATHIC COMPANY-2036459

PATIENT
  Age: 76 Year
  Sex: Female

DRUGS (5)
  1. NERVE TONIC [Suspect]
     Active Substance: HOMEOPATHICS
     Indication: STRESS
     Route: 048
     Dates: start: 2016, end: 20171116
  2. NERVE TONIC [Suspect]
     Active Substance: HOMEOPATHICS
     Indication: DISTURBANCE IN ATTENTION
     Route: 048
     Dates: start: 2016, end: 20171116
  3. NERVE TONIC [Suspect]
     Active Substance: HOMEOPATHICS
     Indication: NERVOUSNESS
     Route: 048
     Dates: start: 2016, end: 20171116
  4. NERVE TONIC [Suspect]
     Active Substance: HOMEOPATHICS
     Indication: ANXIETY
     Route: 048
     Dates: start: 2016, end: 20171116
  5. NERVE TONIC [Suspect]
     Active Substance: HOMEOPATHICS
     Indication: IRRITABILITY
     Route: 048
     Dates: start: 2016, end: 20171116

REACTIONS (1)
  - Hypertension [None]

NARRATIVE: CASE EVENT DATE: 20171117
